FAERS Safety Report 10057985 (Version 2)
Quarter: 2014Q2

REPORT INFORMATION
  Report Type: Spontaneous
  Country: GB (occurrence: GB)
  Receive Date: 20140404
  Receipt Date: 20140414
  Transmission Date: 20141212
  Serious: Yes (Other)
  Sender: FDA-Public Use
  Company Number: GB-BAYER-2014-043389

PATIENT
  Age: 51 Year
  Sex: Male

DRUGS (17)
  1. CIPROFLOXACIN [Suspect]
     Indication: GASTROENTERITIS SALMONELLA
     Dosage: UNK
     Route: 042
  2. CIPROFLOXACIN [Suspect]
     Indication: ABDOMINAL SEPSIS
  3. CO-AMOXICLAV [Concomitant]
     Indication: GASTROENTERITIS SALMONELLA
  4. CO-AMOXICLAV [Concomitant]
     Indication: ABDOMINAL SEPSIS
  5. METRONIDAZOLE [Concomitant]
     Indication: GASTROENTERITIS SALMONELLA
  6. METRONIDAZOLE [Concomitant]
     Indication: ABDOMINAL SEPSIS
  7. TIGECYCLINE [Concomitant]
     Indication: GASTROENTERITIS SALMONELLA
  8. TIGECYCLINE [Concomitant]
     Indication: ABDOMINAL SEPSIS
  9. MEROPENEM [Concomitant]
     Indication: GASTROENTERITIS SALMONELLA
  10. MEROPENEM [Concomitant]
     Indication: ABDOMINAL SEPSIS
  11. GELATIN [Concomitant]
     Indication: FLUID REPLACEMENT
     Dosage: 2 L, UNK
  12. GELATIN [Concomitant]
     Indication: SALMONELLA SEPSIS
  13. BICARBONAT [Concomitant]
     Indication: FLUID REPLACEMENT
     Dosage: 0.6 L, UNK
  14. BICARBONAT [Concomitant]
     Indication: SALMONELLA SEPSIS
  15. BICARBONAT [Concomitant]
     Indication: METABOLIC ACIDOSIS
  16. NORADRENALINE [Concomitant]
     Indication: SALMONELLA SEPSIS
     Dosage: 0.16 ?G/KG/MIN
  17. PLATELETS, HUMAN BLOOD [Concomitant]
     Indication: THROMBOCYTOPENIA
     Route: 042

REACTIONS (9)
  - Pathogen resistance [None]
  - Drug ineffective [None]
  - Diarrhoea [None]
  - Ileus [None]
  - Rectal perforation [None]
  - Pseudomembranous colitis [None]
  - Abdominal adhesions [Recovered/Resolved with Sequelae]
  - Intestinal dilatation [Recovered/Resolved with Sequelae]
  - Functional gastrointestinal disorder [Recovered/Resolved with Sequelae]
